FAERS Safety Report 25702400 (Version 1)
Quarter: 2025Q3

REPORT INFORMATION
  Report Type: Spontaneous
  Country: US (occurrence: US)
  Receive Date: 20250819
  Receipt Date: 20250819
  Transmission Date: 20251020
  Serious: No
  Sender: REGENERON
  Company Number: US-REGENERON PHARMACEUTICALS, INC.-2025-042220

PATIENT
  Sex: Female

DRUGS (1)
  1. PRALUENT [Suspect]
     Active Substance: ALIROCUMAB
     Indication: Product used for unknown indication
     Dosage: 150 MG, Q2W
     Route: 058
     Dates: start: 2020

REACTIONS (8)
  - Taste disorder [Unknown]
  - Paraesthesia oral [Unknown]
  - Chest pain [Unknown]
  - Burning sensation [Unknown]
  - Nausea [Unknown]
  - Heart rate increased [Unknown]
  - Paraesthesia [Unknown]
  - Drug hypersensitivity [Unknown]

NARRATIVE: CASE EVENT DATE: 20250304
